FAERS Safety Report 8341065-4 (Version None)
Quarter: 2012Q2

REPORT INFORMATION
  Report Type: 
  Country: None (occurrence: None)
  Receive Date: 20120507
  Receipt Date: 20120503
  Transmission Date: 20120825
  Serious: Yes (Other)
  Sender: FDA-Public Use
  Company Number: US-GLAXOSMITHKLINE-A0919846A

PATIENT
  Age: 45 Year
  Sex: Female
  Weight: 62.3 kg

DRUGS (2)
  1. EFFEXOR [Concomitant]
     Dates: end: 20090324
  2. LAMICTAL [Suspect]
     Indication: BIPOLAR DISORDER
     Dosage: 100MG PER DAY
     Route: 048
     Dates: start: 20090303, end: 20090324

REACTIONS (3)
  - STEVENS-JOHNSON SYNDROME [None]
  - FUNGAL INFECTION [None]
  - TENOSYNOVITIS [None]
